FAERS Safety Report 8008514-2 (Version None)
Quarter: 2011Q4

REPORT INFORMATION
  Report Type: 
  Country: None (occurrence: None)
  Receive Date: 20111221
  Receipt Date: 20111209
  Transmission Date: 20120403
  Serious: Yes (Life-Threatening, Hospitalization)
  Sender: FDA-Public Use
  Company Number: 1000023430

PATIENT
  Age: 70 Year
  Sex: Female
  Weight: 73 kg

DRUGS (13)
  1. ASPIRIN [Concomitant]
  2. VERAPAMIL [Concomitant]
  3. ALLOPURINOL [Concomitant]
  4. METFORMIN HCL [Concomitant]
  5. RAMIPRIL [Concomitant]
  6. FUROSEMIDE [Concomitant]
  7. SYMBICORT [Concomitant]
  8. SPIRIVA RESPIMAT (TIOTROPIUM BROMIDE) [Concomitant]
  9. THEOPHYLLINE [Concomitant]
  10. LEVOTHYROXINE SODIUM [Concomitant]
  11. ROFLUMILAST (ROFLUMILAST) (TABLETS) [Suspect]
     Indication: CHRONIC OBSTRUCTIVE PULMONARY DISEASE
     Dosage: 500 MCG, ORAL
     Route: 048
     Dates: start: 20110126, end: 20110614
  12. SIMVASTATIN [Concomitant]
  13. THEOPHYLLINE [Concomitant]

REACTIONS (6)
  - ATRIAL FIBRILLATION [None]
  - OVERDOSE [None]
  - DIZZINESS [None]
  - HYPERTHYROIDISM [None]
  - SYNCOPE [None]
  - HYPOKALAEMIA [None]
